FAERS Safety Report 6036807-7 (Version None)
Quarter: 2009Q1

REPORT INFORMATION
  Report Type: 
  Country: None (occurrence: None)
  Receive Date: 20090114
  Receipt Date: 20090106
  Transmission Date: 20090719
  Serious: Yes (Other)
  Sender: FDA-Public Use
  Company Number: PHEH2008US11194

PATIENT
  Sex: Female
  Weight: 66.667 kg

DRUGS (15)
  1. FEMARA [Suspect]
     Indication: BREAST CANCER
     Dosage: 2.5 MG, QD
     Route: 048
     Dates: start: 20081020
  2. ZESTRIL [Concomitant]
     Dosage: 10 MG, QD
     Route: 048
  3. LOVASTATIN [Concomitant]
     Dosage: 10 MG, QD
     Route: 048
  4. METFORMIN [Concomitant]
     Dosage: 500 MEQ/KG, QD
     Route: 048
  5. XANAX [Concomitant]
     Dosage: 0.25 MG, QD
     Route: 048
  6. METHOTREXATE [Concomitant]
     Dosage: 2.5 MG, QW
     Route: 048
  7. PREDNISONE TAB [Concomitant]
     Dosage: 5/2.5 MG PO QD
     Route: 048
  8. M.V.I. [Concomitant]
     Dosage: 1 UNK, QD
     Route: 048
  9. LUTEIN [Concomitant]
     Dosage: 18 MG TO 20 MG QD
     Route: 048
  10. FOLIC ACID [Concomitant]
     Dosage: 800 MG, QD
     Route: 048
  11. VITAMIN D [Concomitant]
     Dosage: 400 IU, QD
     Route: 048
  12. ARAVA [Concomitant]
     Dosage: 20 MG, QD
     Route: 048
  13. FOSAMAX [Concomitant]
     Dosage: 70 MG, QW
  14. FLAXSEED OIL [Concomitant]
     Dosage: 1200 MG, QD
     Route: 048
  15. ARIMIDEX [Concomitant]
     Dosage: 1 MG, QD

REACTIONS (9)
  - ALOPECIA [None]
  - CHEST PAIN [None]
  - FATIGUE [None]
  - HEADACHE [None]
  - HYPOAESTHESIA [None]
  - MALAISE [None]
  - PARAESTHESIA [None]
  - RASH [None]
  - TINNITUS [None]
